FAERS Safety Report 21440628 (Version 1)
Quarter: 2022Q4

REPORT INFORMATION
  Report Type: Spontaneous
  Country: CN (occurrence: CN)
  Receive Date: 20221011
  Receipt Date: 20221011
  Transmission Date: 20230113
  Serious: Yes (Life-Threatening)
  Sender: FDA-Public Use
  Company Number: CN-BAYER-2022A138994

PATIENT
  Age: 36 Year
  Sex: Male
  Weight: 80 kg

DRUGS (1)
  1. AVELOX [Suspect]
     Active Substance: MOXIFLOXACIN HYDROCHLORIDE
     Indication: Tonsillitis
     Dosage: 1 DF, QD
     Route: 048
     Dates: start: 20221005, end: 20221005

REACTIONS (7)
  - Coma [Recovered/Resolved]
  - Vertigo [Recovered/Resolved]
  - Loss of consciousness [Recovered/Resolved]
  - Cold sweat [Recovering/Resolving]
  - Vomiting [Recovering/Resolving]
  - Epigastric discomfort [Recovering/Resolving]
  - Off label use [None]

NARRATIVE: CASE EVENT DATE: 20221005
